FAERS Safety Report 12996309 (Version 2)
Quarter: 2018Q2

REPORT INFORMATION
  Report Type: Spontaneous
  Country: AR (occurrence: AR)
  Receive Date: 20161203
  Receipt Date: 20180423
  Transmission Date: 20180711
  Serious: Yes (Other)
  Sender: FDA-Public Use
  Company Number: AR-STRIDES ARCOLAB LIMITED-2016SP018409

PATIENT

DRUGS (3)
  1. THYMOGLOBULIN [Concomitant]
     Active Substance: LAPINE T-LYMPHOCYTE IMMUNE GLOBULIN
     Indication: RENAL TRANSPLANT
     Dosage: UNK
     Route: 065
  2. TACROLIMUS. [Suspect]
     Active Substance: TACROLIMUS
     Indication: RENAL TRANSPLANT
     Dosage: UNK
     Route: 065
  3. EVEROLIMUS. [Concomitant]
     Active Substance: EVEROLIMUS
     Indication: RENAL TRANSPLANT
     Dosage: UNK
     Route: 065

REACTIONS (5)
  - Post transplant distal limb syndrome [Recovered/Resolved]
  - Bone marrow oedema [Recovered/Resolved]
  - Pain in extremity [Recovered/Resolved]
  - Toxicity to various agents [Recovered/Resolved]
  - Hyperparathyroidism [Recovered/Resolved]
